FAERS Safety Report 25549192 (Version 1)
Quarter: 2025Q3

REPORT INFORMATION
  Report Type: Spontaneous
  Country: US (occurrence: None)
  Receive Date: 20250712
  Receipt Date: 20250712
  Transmission Date: 20251021
  Serious: Yes (Hospitalization)
  Sender: FDA-CTU
  Company Number: None

PATIENT
  Age: 66 Year
  Sex: Female

DRUGS (19)
  1. REPATHA [Suspect]
     Active Substance: EVOLOCUMAB
     Indication: Hypercholesterolaemia
  2. AMLODIPINE [Concomitant]
     Active Substance: AMLODIPINE BESYLATE
  3. TOLTERODINE [Concomitant]
     Active Substance: TOLTERODINE
  4. METOPROLOL TARTRATE [Concomitant]
     Active Substance: METOPROLOL TARTRATE
  5. CHLOTHALIDONE [Concomitant]
  6. EZETIMIBE [Concomitant]
     Active Substance: EZETIMIBE
  7. VALSARTAN [Concomitant]
     Active Substance: VALSARTAN
  8. LEVOTHYROXINE [Concomitant]
     Active Substance: LEVOTHYROXINE
  9. POTASSIUM CL [Concomitant]
     Indication: Hypercholesterolaemia
     Route: 058
     Dates: start: 20230824
  10. CALCIUM\VITAMIN D [Concomitant]
     Active Substance: CALCIUM\VITAMIN D
  11. CARVEDIOLOL [Concomitant]
  12. PANTOPRAZOLE [Concomitant]
     Active Substance: PANTOPRAZOLE
  13. METFORMIN HYDROCHLORIDE [Concomitant]
     Active Substance: METFORMIN HYDROCHLORIDE
  14. GABAPENTIN [Concomitant]
     Active Substance: GABAPENTIN
  15. ISOSORBIDE MONO [Concomitant]
  16. OXYBUTYNIN [Concomitant]
     Active Substance: OXYBUTYNIN
  17. METRONIDAZOLE [Concomitant]
     Active Substance: METRONIDAZOLE
  18. TRETINOIN [Concomitant]
     Active Substance: TRETINOIN
  19. CLOPIDOGREL [Concomitant]
     Active Substance: CLOPIDOGREL BISULFATE

REACTIONS (3)
  - Gastrointestinal haemorrhage [None]
  - Oesophageal variceal ligation [None]
  - Hepatic steatosis [None]

NARRATIVE: CASE EVENT DATE: 20250707
